FAERS Safety Report 21985837 (Version 1)
Quarter: 2023Q1

REPORT INFORMATION
  Report Type: Spontaneous
  Country: US (occurrence: None)
  Receive Date: 20230210
  Receipt Date: 20230210
  Transmission Date: 20230417
  Serious: No
  Sender: FDA-Public Use
  Company Number: None

PATIENT
  Age: 78 Year
  Sex: Male

DRUGS (1)
  1. ERLOTINIB [Suspect]
     Active Substance: ERLOTINIB
     Dosage: FREQUENCY : DAILY;?
     Route: 048

REACTIONS (8)
  - Haematological infection [None]
  - Loss of consciousness [None]
  - Therapy interrupted [None]
  - Rash pruritic [None]
  - Dry skin [None]
  - Off label use [None]
  - Lung neoplasm malignant [None]
  - Bone cancer [None]

NARRATIVE: CASE EVENT DATE: 20230210
